FAERS Safety Report 7564849-9 (Version None)
Quarter: 2011Q2

REPORT INFORMATION
  Report Type: 
  Country: None (occurrence: None)
  Receive Date: 20110622
  Receipt Date: 20110118
  Transmission Date: 20111010
  Serious: Yes (Other)
  Sender: FDA-Public Use
  Company Number: US-MYLANLABS-2011S1000149

PATIENT
  Age: 67 Year
  Sex: Female
  Weight: 68.04 kg

DRUGS (13)
  1. ATENOLOL [Concomitant]
  2. ZOLPIDEM [Concomitant]
  3. GLIPIZIDE [Concomitant]
  4. GEMFIBROZIL [Concomitant]
  5. PRIMROSE OIL [Concomitant]
  6. CLOZAPINE [Suspect]
     Indication: AGGRESSION
     Route: 048
     Dates: start: 20100910, end: 20101213
  7. DIVALPROEX SODIUM [Concomitant]
  8. CALCIUM + VITAMIN D /01483701/ [Concomitant]
  9. LANTUS [Concomitant]
  10. CLOZAPINE [Suspect]
     Indication: PARANOIA
     Route: 048
     Dates: start: 20100910, end: 20101213
  11. SIMVASTATIN [Concomitant]
  12. ADVAIR DISKUS 100/50 [Concomitant]
     Dosage: 250MG/50MG
     Route: 055
  13. LISINOPRIL [Concomitant]

REACTIONS (2)
  - LEUKOPENIA [None]
  - GRANULOCYTOPENIA [None]
